FAERS Safety Report 16897493 (Version 1)
Quarter: 2019Q4

REPORT INFORMATION
  Report Type: Report from Study
  Country: US (occurrence: US)
  Receive Date: 20191009
  Receipt Date: 20191009
  Transmission Date: 20200122
  Serious: No
  Sender: FDA-Public Use
  Company Number: US-EMD SERONO-9110264

PATIENT
  Age: 31 Year
  Sex: Female

DRUGS (1)
  1. MAVENCLAD [Suspect]
     Active Substance: CLADRIBINE
     Indication: MULTIPLE SCLEROSIS
     Dates: start: 20190731, end: 20190805

REACTIONS (1)
  - Fatigue [Recovered/Resolved]

NARRATIVE: CASE EVENT DATE: 20190731
